FAERS Safety Report 24916678 (Version 1)
Quarter: 2025Q1

REPORT INFORMATION
  Report Type: Report from Study
  Country: CA (occurrence: CA)
  Receive Date: 20250203
  Receipt Date: 20250203
  Transmission Date: 20250409
  Serious: Yes (Hospitalization)
  Sender: TAKEDA
  Company Number: CA-TAKEDA-2025TUS010728

PATIENT
  Sex: Male

DRUGS (14)
  1. VEDOLIZUMAB [Suspect]
     Active Substance: VEDOLIZUMAB
     Indication: Colitis ulcerative
  2. METOPROLOL [Concomitant]
     Active Substance: METOPROLOL
  3. AMIODARONE [Concomitant]
     Active Substance: AMIODARONE
  4. ALLOPURINOL [Concomitant]
     Active Substance: ALLOPURINOL
  5. OZEMPIC [Concomitant]
     Active Substance: SEMAGLUTIDE
  6. CRESTOR [Concomitant]
     Active Substance: ROSUVASTATIN CALCIUM
  7. PANTOPRAZOLE [Concomitant]
     Active Substance: PANTOPRAZOLE
  8. GLICLAZIDE [Concomitant]
     Active Substance: GLICLAZIDE
  9. PLAVIX [Concomitant]
     Active Substance: CLOPIDOGREL BISULFATE
  10. EZETIMIBE [Concomitant]
     Active Substance: EZETIMIBE
  11. ASPIRIN [Concomitant]
     Active Substance: ASPIRIN
  12. VITAMIN C [Concomitant]
     Active Substance: ASCORBIC ACID
  13. VITAMIN D [Concomitant]
     Active Substance: VITAMIN D NOS
  14. CANDESARTAN [Concomitant]
     Active Substance: CANDESARTAN

REACTIONS (2)
  - Fall [Recovering/Resolving]
  - Arthralgia [Recovering/Resolving]
